FAERS Safety Report 23131441 (Version 3)
Quarter: 2024Q1

REPORT INFORMATION
  Report Type: Report from Study
  Country: US (occurrence: US)
  Receive Date: 20231031
  Receipt Date: 20240131
  Transmission Date: 20240409
  Serious: Yes (Hospitalization, Other)
  Sender: FDA-Public Use
  Company Number: US-ABBVIE-5466331

PATIENT
  Sex: Female
  Weight: 58 kg

DRUGS (3)
  1. IMBRUVICA [Suspect]
     Active Substance: IBRUTINIB
     Indication: Chronic lymphocytic leukaemia
     Dosage: THERAPY END DATE WAS 2023
     Route: 048
     Dates: start: 202306
  2. IMBRUVICA [Suspect]
     Active Substance: IBRUTINIB
     Indication: Chronic lymphocytic leukaemia
     Route: 048
     Dates: start: 202307
  3. Prostec [Concomitant]
     Indication: Product used for unknown indication

REACTIONS (2)
  - Fall [Recovered/Resolved]
  - Hospice care [Unknown]

NARRATIVE: CASE EVENT DATE: 20230101
